FAERS Safety Report 11753055 (Version 1)
Quarter: 2015Q4

REPORT INFORMATION
  Report Type: Spontaneous
  Country: US (occurrence: US)
  Receive Date: 20151119
  Receipt Date: 20151119
  Transmission Date: 20160304
  Serious: Yes (Hospitalization, Other)
  Sender: FDA-Public Use
  Company Number: US-TEVA-609951USA

PATIENT
  Age: 70 Year
  Sex: Female

DRUGS (4)
  1. NIACIN. [Suspect]
     Active Substance: NIACIN
     Indication: SUPPLEMENTATION THERAPY
     Dosage: 3000 MILLIGRAM DAILY;
     Route: 048
     Dates: start: 201206, end: 20150908
  2. SIMVASTATIN. [Suspect]
     Active Substance: SIMVASTATIN
     Indication: BLOOD CHOLESTEROL INCREASED
     Dosage: DAILY
     Route: 048
     Dates: end: 20150908
  3. HYDROCHLOROTHIAZIDE. [Concomitant]
     Active Substance: HYDROCHLOROTHIAZIDE
     Dosage: 25 MILLIGRAM DAILY;
  4. MAGNESIUM [Concomitant]
     Active Substance: MAGNESIUM
     Indication: ROUTINE HEALTH MAINTENANCE
     Dosage: DAILY

REACTIONS (6)
  - Blood creatine phosphokinase increased [Recovered/Resolved]
  - Hepatic enzyme increased [Recovered/Resolved]
  - Heart valve replacement [Recovered/Resolved]
  - Myalgia [Recovered/Resolved]
  - Rhabdomyolysis [Recovered/Resolved]
  - Swelling [Recovered/Resolved]

NARRATIVE: CASE EVENT DATE: 20150706
